FAERS Safety Report 24391432 (Version 1)
Quarter: 2024Q4

REPORT INFORMATION
  Report Type: Spontaneous
  Country: US (occurrence: None)
  Receive Date: 20241002
  Receipt Date: 20241002
  Transmission Date: 20250115
  Serious: Yes (Death, Hospitalization)
  Sender: Public
  Company Number: None

PATIENT
  Age: 73 Year
  Sex: Male

DRUGS (1)
  1. OFEV [Suspect]
     Active Substance: NINTEDANIB
     Indication: Interstitial lung disease
     Dosage: FREQUENCY : TWICE A DAY;?
     Route: 048
     Dates: start: 20240807, end: 20240911

REACTIONS (3)
  - Acute respiratory failure [None]
  - Hypoxia [None]
  - Respiratory distress [None]

NARRATIVE: CASE EVENT DATE: 20240912
